FAERS Safety Report 15298606 (Version 1)
Quarter: 2018Q4

REPORT INFORMATION
  Report Type: Spontaneous
  Country: GB (occurrence: GB)
  Receive Date: 20180820
  Receipt Date: 20180820
  Transmission Date: 20190204
  Serious: Yes (Other)
  Sender: FDA-Public Use
  Company Number: GB-NAPPMUNDI-GBR-2017-0051170

PATIENT
  Sex: Female

DRUGS (1)
  1. SHORTEC [Suspect]
     Active Substance: OXYCODONE HYDROCHLORIDE
     Indication: ANALGESIC THERAPY
     Dosage: UNK, STRENGTH 10MG
     Route: 065

REACTIONS (4)
  - Gait inability [Unknown]
  - Feeling abnormal [Unknown]
  - Catatonia [Unknown]
  - Speech disorder [Unknown]
